FAERS Safety Report 6661875-9 (Version None)
Quarter: 2010Q1

REPORT INFORMATION
  Report Type: 
  Country: None (occurrence: None)
  Receive Date: 20100331
  Receipt Date: 20090901
  Transmission Date: 20100710
  Serious: Yes (Other)
  Sender: FDA-Public Use
  Company Number: US-BRISTOL-MYERS SQUIBB COMPANY-14763775

PATIENT
  Age: 6 Decade
  Sex: Male

DRUGS (4)
  1. ERBITUX [Suspect]
     Indication: COLORECTAL CANCER
     Dosage: 1ST DOSE
  2. DEXAMETHASONE [Concomitant]
  3. BENADRYL [Concomitant]
  4. TYLENOL-500 [Concomitant]

REACTIONS (1)
  - INFUSION RELATED REACTION [None]
